FAERS Safety Report 7672764-5 (Version None)
Quarter: 2011Q3

REPORT INFORMATION
  Report Type: 
  Country: None (occurrence: None)
  Receive Date: 20110809
  Receipt Date: 20110725
  Transmission Date: 20111222
  Serious: Yes (Hospitalization, Other)
  Sender: FDA-Public Use
  Company Number: JP-WATSON-2011-12301

PATIENT
  Age: 69 Year
  Sex: Male

DRUGS (2)
  1. GEMCITABINE [Suspect]
     Indication: PANCREATIC CARCINOMA
     Dosage: 400 MG/M2, ON DAYS 1 AND 8, Q 3 WKS
     Dates: start: 20081201, end: 20090801
  2. ANTIMETABOLITES [Suspect]
     Indication: PANCREATIC CARCINOMA
     Dosage: 80 MG, DAILY, ON DAYS 1-14, Q 3 WKS
     Dates: start: 20081201

REACTIONS (3)
  - GANGRENE [None]
  - RAYNAUD'S PHENOMENON [None]
  - PERIPHERAL ISCHAEMIA [None]
